FAERS Safety Report 9659179 (Version 8)
Quarter: 2015Q4

REPORT INFORMATION
  Report Type: Report from Study
  Country: CA (occurrence: CA)
  Receive Date: 20131031
  Receipt Date: 20151103
  Transmission Date: 20160305
  Serious: Yes (Other)
  Sender: FDA-Public Use
  Company Number: CA-ROCHE-1290773

PATIENT
  Age: 54 Year
  Sex: Female
  Weight: 83 kg

DRUGS (10)
  1. FOLIC ACID. [Concomitant]
     Active Substance: FOLIC ACID
  2. ACETAMINOPHEN. [Concomitant]
     Active Substance: ACETAMINOPHEN
     Indication: PREMEDICATION
     Route: 048
     Dates: start: 20120705
  3. PREDNISONE. [Concomitant]
     Active Substance: PREDNISONE
  4. METHOTREXATE [Concomitant]
     Active Substance: METHOTREXATE
  5. HYDROCHLOROTHIAZIDE. [Concomitant]
     Active Substance: HYDROCHLOROTHIAZIDE
  6. RITUXAN [Suspect]
     Active Substance: RITUXIMAB
     Indication: DERMATOMYOSITIS
     Dosage: LAST RITUXIMAB INFUSION: 16/APR/2015.
     Route: 042
     Dates: start: 20120705
  7. METHYLPREDNISOLONE. [Concomitant]
     Active Substance: METHYLPREDNISOLONE
     Indication: PREMEDICATION
     Route: 042
     Dates: start: 20120705
  8. DIPHENHYDRAMINE HCL [Concomitant]
     Active Substance: DIPHENHYDRAMINE HYDROCHLORIDE
     Indication: PREMEDICATION
     Route: 048
     Dates: start: 20120705
  9. OXYCODONE [Concomitant]
     Active Substance: OXYCODONE
  10. MAVIK [Concomitant]
     Active Substance: TRANDOLAPRIL

REACTIONS (7)
  - Hypotension [Recovering/Resolving]
  - Blood pressure increased [Unknown]
  - Wound [Recovering/Resolving]
  - Arthropathy [Unknown]
  - Off label use [Unknown]
  - Localised infection [Unknown]
  - Sepsis [Not Recovered/Not Resolved]

NARRATIVE: CASE EVENT DATE: 201307
